FAERS Safety Report 18481207 (Version 2)
Quarter: 2020Q4

REPORT INFORMATION
  Report Type: Report from Study
  Country: BE (occurrence: BE)
  Receive Date: 20201109
  Receipt Date: 20201201
  Transmission Date: 20210114
  Serious: Yes (Hospitalization)
  Sender: FDA-Public Use
  Company Number: BE-EXELIXIS-XL18420034731

PATIENT
  Age: 68 Year
  Sex: Male

DRUGS (15)
  1. TRADONAL [Concomitant]
     Active Substance: TRAMADOL HYDROCHLORIDE
  2. ASAFLOW [Concomitant]
     Active Substance: ASPIRIN
  3. SIMVASTATINE [Concomitant]
     Active Substance: SIMVASTATIN
  4. ALLOPURINOL BEXAL [Concomitant]
  5. OMEPRAZOL AB [Concomitant]
  6. LYRICA [Concomitant]
     Active Substance: PREGABALIN
  7. XL184 [Suspect]
     Active Substance: CABOZANTINIB
     Indication: HEPATOCELLULAR CARCINOMA
     Dosage: 40 MG, QD
     Route: 048
     Dates: start: 20191218
  8. PENTASA [Concomitant]
     Active Substance: MESALAMINE
  9. ATEZOLIZUMAB. [Suspect]
     Active Substance: ATEZOLIZUMAB
     Indication: HEPATOCELLULAR CARCINOMA
     Dosage: 1200 MG, Q3WEEKS
     Route: 042
     Dates: start: 20191218
  10. GLICAZIDA [Concomitant]
     Active Substance: GLICLAZIDE
  11. FENOFIBRATE BEXAL [Concomitant]
  12. DICLOFENAC BEXAL [Concomitant]
  13. IMODIUM [Concomitant]
     Active Substance: LOPERAMIDE HYDROCHLORIDE
  14. MOTILIUM [Concomitant]
     Active Substance: DOMPERIDONE
  15. PARACETAMOL ACTAVIS [Concomitant]
     Active Substance: ACETAMINOPHEN

REACTIONS (1)
  - Sepsis [Unknown]

NARRATIVE: CASE EVENT DATE: 20201029
